FAERS Safety Report 9714345 (Version 3)
Quarter: 2014Q1

REPORT INFORMATION
  Report Type: Spontaneous
  Country: BR (occurrence: BR)
  Receive Date: 20131126
  Receipt Date: 20140213
  Transmission Date: 20141002
  Serious: Yes (Hospitalization, Other)
  Sender: FDA-Public Use
  Company Number: BR-PFIZER INC-2013336475

PATIENT
  Age: 60 Year
  Sex: Female

DRUGS (7)
  1. PANTOPRAZOLE [Suspect]
     Indication: GASTRITIS
     Dosage: 40 MG, 1X/DAY
     Route: 065
  2. CALCIUM-SANDOZ FORTE [Suspect]
     Indication: PROPHYLAXIS
     Dosage: 4 OR 3 TABLET NOT CLARIFIED, 500 MG
     Route: 048
  3. ALUMINUM HYDROXIDE [Suspect]
     Indication: DYSPEPSIA
     Dosage: 1 TABLESPOON AS NEEDED
     Route: 065
  4. GASTROGEL [Suspect]
     Indication: DYSPEPSIA
     Dosage: 1 TABLESPOON AS NEEDED
     Route: 065
  5. RIVOTRIL [Suspect]
     Indication: SLEEP DISORDER
     Dosage: 2 MG, DAILY
     Route: 065
  6. PURAN T4 [Suspect]
     Indication: THYROID DISORDER
     Dosage: 1 DF, QD (88: UNIT UNSPECIFIED)
     Route: 048
  7. CALCIUM-SANDOZ FORTE [Suspect]
     Indication: PROPHYLAXIS
     Dosage: 3 DF, DAILY (1000 MG)
     Route: 048

REACTIONS (16)
  - Hiatus hernia [Unknown]
  - Reflux gastritis [Unknown]
  - Corrosive gastritis [Unknown]
  - Vocal cord disorder [Unknown]
  - Blindness [Unknown]
  - Blood cholesterol abnormal [Unknown]
  - Aphagia [Recovered/Resolved]
  - Musculoskeletal stiffness [Recovered/Resolved]
  - Eating disorder [Recovered/Resolved]
  - Pain [Recovered/Resolved]
  - Tongue disorder [Recovered/Resolved]
  - Feeling abnormal [Unknown]
  - Insomnia [Unknown]
  - Dizziness [Recovered/Resolved]
  - Asthenia [Recovered/Resolved]
  - Headache [Recovered/Resolved]
